FAERS Safety Report 4530653-9 (Version None)
Quarter: 2004Q4

REPORT INFORMATION
  Report Type: 
  Country: None (occurrence: None)
  Receive Date: 20041217
  Receipt Date: 20041207
  Transmission Date: 20050328
  Serious: Yes (Hospitalization)
  Sender: FDA-Public Use
  Company Number: DE-ABBOTT-04P-062-0282848-00

PATIENT
  Sex: Female
  Weight: 58.6 kg

DRUGS (3)
  1. HUMIRA [Suspect]
     Indication: RHEUMATOID ARTHRITIS
     Route: 058
     Dates: start: 20040501, end: 20040901
  2. PHENPROCOUMON [Concomitant]
     Indication: ATRIAL FIBRILLATION
     Route: 048
     Dates: end: 20040801
  3. PHENPROCOUMON [Concomitant]
     Route: 048
     Dates: start: 20040901

REACTIONS (6)
  - BLOOD IMMUNOGLOBULIN G INCREASED [None]
  - ERYSIPELAS [None]
  - EXANTHEM [None]
  - GENERAL PHYSICAL HEALTH DETERIORATION [None]
  - OEDEMA [None]
  - PETECHIAE [None]
